FAERS Safety Report 14506639 (Version 2)
Quarter: 2018Q1

REPORT INFORMATION
  Report Type: Report from Study
  Country: US (occurrence: US)
  Receive Date: 20180208
  Receipt Date: 20180226
  Transmission Date: 20180509
  Serious: Yes (Death, Hospitalization)
  Sender: FDA-Public Use
  Company Number: US-JNJFOC-20180209845

PATIENT
  Age: 74 Year
  Sex: Male

DRUGS (24)
  1. IMBRUVICA [Suspect]
     Active Substance: IBRUTINIB
     Indication: AMYLOIDOSIS
     Route: 048
     Dates: start: 20180108, end: 20180219
  2. ALLOPURINOL. [Concomitant]
     Active Substance: ALLOPURINOL
  3. PYRIDOSTIGMINE [Concomitant]
     Active Substance: PYRIDOSTIGMINE
  4. BORTEZOMIB [Concomitant]
     Active Substance: BORTEZOMIB
  5. SYMBICORT [Concomitant]
     Active Substance: BUDESONIDE\FORMOTEROL FUMARATE DIHYDRATE
     Dosage: 160-4.5 MCG/ACT
  6. VITAMIN D [Concomitant]
     Active Substance: CHOLECALCIFEROL
  7. BENDAMUSTINE [Concomitant]
     Active Substance: BENDAMUSTINE
  8. CHLORTHALIDONE. [Concomitant]
     Active Substance: CHLORTHALIDONE
  9. CAPTOPRIL. [Concomitant]
     Active Substance: CAPTOPRIL
  10. OMEPRAZOLE. [Concomitant]
     Active Substance: OMEPRAZOLE
  11. DOXYCYCLINE. [Concomitant]
     Active Substance: DOXYCYCLINE
  12. PROAIR HFA [Concomitant]
     Active Substance: ALBUTEROL SULFATE
  13. RITUXAN [Concomitant]
     Active Substance: RITUXIMAB
  14. TAMSULOSIN [Concomitant]
     Active Substance: TAMSULOSIN
  15. IMBRUVICA [Suspect]
     Active Substance: IBRUTINIB
     Indication: NON-HODGKIN^S LYMPHOMA
     Route: 048
     Dates: start: 20180108, end: 20180219
  16. ATORVASTATIN [Concomitant]
     Active Substance: ATORVASTATIN
  17. GLIMEPIRIDE. [Concomitant]
     Active Substance: GLIMEPIRIDE
  18. ONDANSETRON [Concomitant]
     Active Substance: ONDANSETRON
  19. VALACYCLOVIR [Concomitant]
     Active Substance: VALACYCLOVIR HYDROCHLORIDE
  20. DEXAMETHASONE. [Concomitant]
     Active Substance: DEXAMETHASONE
  21. MAGNESIUM OXIDE. [Concomitant]
     Active Substance: MAGNESIUM OXIDE
  22. MIDODRINE [Concomitant]
     Active Substance: MIDODRINE
  23. PREDNISOLONE. [Concomitant]
     Active Substance: PREDNISOLONE
     Dosage: 25 MG/5ML
  24. ALBUTEROL. [Concomitant]
     Active Substance: ALBUTEROL

REACTIONS (4)
  - Disease progression [Fatal]
  - Hypotension [Not Recovered/Not Resolved]
  - Off label use [Unknown]
  - Product use in unapproved indication [Unknown]

NARRATIVE: CASE EVENT DATE: 20180108
